FAERS Safety Report 8641607 (Version 3)
Quarter: 2014Q1

REPORT INFORMATION
  Report Type: Spontaneous
  Country: US (occurrence: None)
  Receive Date: 20120323
  Receipt Date: 20140306
  Transmission Date: 20141002
  Serious: Yes (Hospitalization, Other)
  Sender: FDA-Public Use
  Company Number: 163-21880-11102504

PATIENT
  Age: 77 Year
  Sex: Male
  Weight: 72.58 kg

DRUGS (18)
  1. REVLIMID [Suspect]
     Indication: PLASMA CELL MYELOMA
     Dosage: 10 MG, 21 IN 28  D, PO
     Route: 048
     Dates: start: 20091007
  2. NITROSTAT (GLYCERYL TRINITRATE) [Concomitant]
  3. ASPIRINE (ACETYLSALICYLIC) [Concomitant]
  4. STOOL SOFTENER (DOCUSATE SODIUM) [Concomitant]
  5. LISINOPRIL (LISINOPRIL) [Concomitant]
  6. METOPROLOL TARTRATE (METOPROLOL TARTRATE) [Concomitant]
  7. ENOXAPARIN (ENOXAPARIN) [Concomitant]
  8. PLAVIX (CLOPIDOGREL SULFATE) [Concomitant]
  9. OMEPRAZOLE (OMEPRAZOLE) [Concomitant]
  10. CENTRUM SILVER (CENTRUM SILVER) [Concomitant]
  11. ZOCOR (SIMVASTATIN) [Concomitant]
  12. DEXAMETHASONE (DEXAMETHASONE) [Concomitant]
  13. NORVASC (AMLODIPINE BESILATE) [Concomitant]
  14. FLUTAMIDE (FLUTAMIDE) [Concomitant]
  15. PROBIOTIC (BIFIDOBACTERIUM LACTIS) [Concomitant]
  16. FLOMAX (TAMSULOSIN HYDROCHLORIDE) [Concomitant]
  17. FISH OIL (FISH OIL) [Concomitant]
  18. PROSTATE HEALTH (SERENOA REPENS) [Concomitant]

REACTIONS (5)
  - Thrombosis [None]
  - Pulmonary embolism [None]
  - Constipation [None]
  - Anaemia [None]
  - Muscular weakness [None]
